FAERS Safety Report 5500717-1 (Version None)
Quarter: 2007Q4

REPORT INFORMATION
  Report Type: 
  Country: None (occurrence: None)
  Receive Date: 20071029
  Receipt Date: 20071023
  Transmission Date: 20080405
  Serious: Yes (Other)
  Sender: FDA-Public Use
  Company Number: IE-MERCK-0710GBR00106

PATIENT
  Age: 69 Year
  Sex: Male

DRUGS (5)
  1. SINGULAIR [Suspect]
     Indication: ASTHMA
     Route: 048
     Dates: start: 20070101, end: 20070301
  2. VALSARTAN [Suspect]
     Indication: HYPERTENSION
     Route: 048
     Dates: start: 20070101
  3. BUDESONIDE AND FORMOTEROL FUMARATE [Concomitant]
  4. ALBUTEROL [Concomitant]
  5. AMLODIPINE BESYLATE [Concomitant]
     Route: 065

REACTIONS (4)
  - ASTHENIA [None]
  - EOSINOPHILIA [None]
  - NEURITIS [None]
  - RENAL IMPAIRMENT [None]
